FAERS Safety Report 6346045-6 (Version None)
Quarter: 2009Q3

REPORT INFORMATION
  Report Type: 
  Country: None (occurrence: None)
  Receive Date: 20090821
  Receipt Date: 20090612
  Transmission Date: 20100115
  Serious: No
  Sender: FDA-Public Use
  Company Number: 8047932

PATIENT
  Age: 28 Year
  Sex: Male
  Weight: 86.1 kg

DRUGS (6)
  1. CIMZIA [Suspect]
     Indication: CROHN'S DISEASE
     Dosage: 400 MG SC
     Route: 058
     Dates: start: 20090416
  2. MERCAPTOPURINE [Concomitant]
  3. ENTOCORT EC [Concomitant]
  4. FLAGYL [Concomitant]
  5. LOMOTIL [Concomitant]
  6. IMODIUM [Concomitant]

REACTIONS (4)
  - ABDOMINAL PAIN [None]
  - PARAESTHESIA [None]
  - RESPIRATION ABNORMAL [None]
  - SKIN DISCOLOURATION [None]
